FAERS Safety Report 13575342 (Version 1)
Quarter: 2017Q2

REPORT INFORMATION
  Report Type: Spontaneous
  Country: None (occurrence: US)
  Receive Date: 20170523
  Receipt Date: 20170523
  Transmission Date: 20170830
  Serious: No
  Sender: FDA-Public Use
  Company Number: None

PATIENT
  Age: 50 Year
  Sex: Female
  Weight: 83.54 kg

DRUGS (1)
  1. BUPRENORPHINE/NALOXONE 8/2MG [Suspect]
     Active Substance: BUPRENORPHINE HYDROCHLORIDE\NALOXONE HYDROCHLORIDE
     Indication: PRODUCT USED FOR UNKNOWN INDICATION
     Dosage: 8/2MG 1 BID ORAL
     Route: 048
     Dates: start: 20170428

REACTIONS (1)
  - Malaise [None]

NARRATIVE: CASE EVENT DATE: 20170428
